FAERS Safety Report 9323332 (Version 2)
Quarter: 2013Q3

REPORT INFORMATION
  Report Type: Spontaneous
  Country: US (occurrence: US)
  Receive Date: 20130603
  Receipt Date: 20130726
  Transmission Date: 20140515
  Serious: No
  Sender: FDA-Public Use
  Company Number: US-009507513-1305USA017534

PATIENT
  Age: 15 Year
  Sex: Female
  Weight: 62.59 kg

DRUGS (1)
  1. IMPLANON [Suspect]
     Indication: CONTRACEPTION
     Dosage: UNK
     Route: 059
     Dates: start: 201205

REACTIONS (3)
  - Staphylococcal infection [Recovered/Resolved]
  - Implant site infection [Recovered/Resolved]
  - Implant site infection [Recovered/Resolved]
